FAERS Safety Report 5308048-X (Version None)
Quarter: 2007Q1

REPORT INFORMATION
  Report Type: 
  Country: None (occurrence: None)
  Receive Date: 20070130
  Receipt Date: 20060622
  Transmission Date: 20070707
  Serious: Yes (Hospitalization)
  Sender: FDA-Public Use
  Company Number: 452911

PATIENT
  Age: 60 Year
  Sex: Female
  Weight: 65.8 kg

DRUGS (5)
  1. RIBAVIRIN [Suspect]
     Indication: HEPATITIS C
     Dosage: 1000 MG DAILY ORAL
     Route: 048
     Dates: start: 20050515, end: 20050615
  2. PEGASYS [Suspect]
     Indication: HEPATITIS C
     Dosage: 180 MCG 1 PER WEEK SUBCUTANEOUS
     Route: 058
     Dates: start: 20050515, end: 20050615
  3. SYNTHROID [Concomitant]
  4. WELLBUTRIN SR [Concomitant]
  5. BOTOX [Concomitant]

REACTIONS (1)
  - HAEMOLYTIC ANAEMIA [None]
